FAERS Safety Report 10578829 (Version 2)
Quarter: 2015Q1

REPORT INFORMATION
  Report Type: Spontaneous
  Country: US (occurrence: US)
  Receive Date: 20141112
  Receipt Date: 20150305
  Transmission Date: 20150720
  Serious: Yes (Hospitalization)
  Sender: FDA-Public Use
  Company Number: US-009507513-1411USA002266

PATIENT
  Age: 59 Year
  Sex: Male

DRUGS (3)
  1. PROVENTIL [Suspect]
     Active Substance: ALBUTEROL
     Dosage: UNK
     Dates: start: 201408, end: 201408
  2. PROVENTIL [Suspect]
     Active Substance: ALBUTEROL
     Dosage: SMALL AMOUNT INTO LUNGS
     Dates: start: 2014
  3. PROVENTIL [Suspect]
     Active Substance: ALBUTEROL
     Dosage: FOR MANY YEARS

REACTIONS (17)
  - Urinary incontinence [Unknown]
  - Dizziness [Not Recovered/Not Resolved]
  - Decreased appetite [Unknown]
  - Hypoaesthesia [Unknown]
  - Loss of control of legs [Unknown]
  - Malaise [Not Recovered/Not Resolved]
  - Haemoptysis [Unknown]
  - Haemoptysis [Unknown]
  - Presyncope [Unknown]
  - Fatigue [Not Recovered/Not Resolved]
  - Muscular weakness [Not Recovered/Not Resolved]
  - Movement disorder [Unknown]
  - Nausea [Not Recovered/Not Resolved]
  - Loss of control of legs [Unknown]
  - Movement disorder [Recovered/Resolved]
  - Presyncope [Unknown]
  - Feeling abnormal [Not Recovered/Not Resolved]

NARRATIVE: CASE EVENT DATE: 2014
